FAERS Safety Report 23825389 (Version 1)
Quarter: 2024Q2

REPORT INFORMATION
  Report Type: Spontaneous
  Country: US (occurrence: US)
  Receive Date: 20240507
  Receipt Date: 20240507
  Transmission Date: 20240715
  Serious: Yes (Hospitalization, Other)
  Sender: FDA-Public Use
  Company Number: US-HIKMA PHARMACEUTICALS USA INC.-US-H14001-24-03599

PATIENT
  Age: 35 Year
  Sex: Male

DRUGS (5)
  1. ATIVAN [Suspect]
     Active Substance: LORAZEPAM
     Indication: Appendicitis
     Dosage: UNK
     Route: 065
  2. DILAUDID [Suspect]
     Active Substance: HYDROMORPHONE HYDROCHLORIDE
     Indication: Appendicitis
     Dosage: UNK
     Route: 065
  3. FENTANYL [Suspect]
     Active Substance: FENTANYL\FENTANYL CITRATE
     Indication: Appendicitis
     Dosage: UNK
     Route: 065
  4. REGLAN [Suspect]
     Active Substance: METOCLOPRAMIDE HYDROCHLORIDE
     Indication: Appendicitis
     Dosage: UNK
     Route: 030
  5. TORADOL [Suspect]
     Active Substance: KETOROLAC TROMETHAMINE
     Indication: Appendicitis
     Dosage: UNK
     Route: 065

REACTIONS (7)
  - Dystonia [Unknown]
  - Hallucination [Unknown]
  - Near death experience [Unknown]
  - Amnesia [Unknown]
  - Apraxia [Unknown]
  - Insomnia [Unknown]
  - Product use issue [Unknown]
